FAERS Safety Report 11226166 (Version 1)
Quarter: 2015Q2

REPORT INFORMATION
  Report Type: Report from Study
  Country: US (occurrence: US)
  Receive Date: 20150629
  Receipt Date: 20150629
  Transmission Date: 20150821
  Serious: Yes (Other)
  Sender: FDA-Public Use
  Company Number: US-BAYER-2015-346938

PATIENT
  Age: 79 Year
  Sex: Male

DRUGS (3)
  1. NEXAVAR [Suspect]
     Active Substance: SORAFENIB
     Indication: METASTASES TO BONE
  2. NEXAVAR [Suspect]
     Active Substance: SORAFENIB
     Indication: HEPATIC CANCER
     Dosage: 400 MG, BID
     Route: 048
     Dates: start: 20150507, end: 20150529
  3. NEXAVAR [Suspect]
     Active Substance: SORAFENIB
     Indication: NEOPLASM MALIGNANT

REACTIONS (10)
  - Dysphagia [Recovering/Resolving]
  - Oesophageal oedema [Recovering/Resolving]
  - Pulmonary mass [None]
  - Drug dose omission [None]
  - Eating disorder [Recovering/Resolving]
  - Rash [Recovering/Resolving]
  - Stomatitis [Recovered/Resolved]
  - Swollen tongue [Recovering/Resolving]
  - Decubitus ulcer [Recovered/Resolved]
  - Mouth ulceration [Recovering/Resolving]

NARRATIVE: CASE EVENT DATE: 20150529
